FAERS Safety Report 5126973-X (Version None)
Quarter: 2006Q4

REPORT INFORMATION
  Report Type: 
  Country: None (occurrence: None)
  Receive Date: 20061013
  Receipt Date: 20061009
  Transmission Date: 20070319
  Serious: Yes (Other)
  Sender: FDA-Public Use
  Company Number: FR-AVENTIS-200613505FR

PATIENT
  Age: 57 Year
  Sex: Male

DRUGS (2)
  1. TAXOTERE [Suspect]
     Indication: SQUAMOUS CELL CARCINOMA
     Route: 013
     Dates: start: 20060823, end: 20060913
  2. CISPLATIN [Suspect]
     Indication: SQUAMOUS CELL CARCINOMA
     Route: 013
     Dates: start: 20060823, end: 20060913

REACTIONS (1)
  - SKIN NECROSIS [None]
